FAERS Safety Report 6094724-0 (Version None)
Quarter: 2009Q1

REPORT INFORMATION
  Report Type: 
  Country: None (occurrence: None)
  Receive Date: 20090225
  Receipt Date: 20090216
  Transmission Date: 20090719
  Serious: Yes (Other)
  Sender: FDA-Public Use
  Company Number: MK-6033876

PATIENT
  Age: 38 Year
  Sex: Female

DRUGS (8)
  1. ISOTRETINOIN [Suspect]
     Indication: DRUG USE FOR UNKNOWN INDICATION
     Dosage: 40 MG TWICE A DAY ORAL ; 40 MG DAILY ORAL
     Route: 048
     Dates: start: 20061129, end: 20070330
  2. ISOTRETINOIN [Suspect]
     Indication: DRUG USE FOR UNKNOWN INDICATION
     Dosage: 40 MG TWICE A DAY ORAL ; 40 MG DAILY ORAL
     Route: 048
     Dates: start: 20061129, end: 20070330
  3. ZOFRAN [Concomitant]
  4. PROZAC [Concomitant]
  5. LAMICTAL [Concomitant]
  6. PHENERGAN [Concomitant]
  7. REGLAN [Concomitant]
  8. VITAMIN TAB [Concomitant]

REACTIONS (5)
  - DRUG EXPOSURE DURING PREGNANCY [None]
  - LACERATION [None]
  - NAUSEA [None]
  - PREGNANCY [None]
  - VACUUM EXTRACTOR DELIVERY [None]
